FAERS Safety Report 23668409 (Version 1)
Quarter: 2024Q1

REPORT INFORMATION
  Report Type: Spontaneous
  Country: IL (occurrence: None)
  Receive Date: 20240325
  Receipt Date: 20240325
  Transmission Date: 20240410
  Serious: Yes (Disabling)
  Sender: FDA-Public Use
  Company Number: 2024A068470

PATIENT
  Age: 71 Year
  Sex: Male

DRUGS (7)
  1. IMFINZI [Suspect]
     Active Substance: DURVALUMAB
     Dosage: 900.0MG UNKNOWN
     Dates: start: 20230516
  2. GLUCOPHAGE [Concomitant]
     Active Substance: METFORMIN HYDROCHLORIDE
  3. LANTUS [Concomitant]
     Active Substance: INSULIN GLARGINE
  4. SIMVASTATIN [Concomitant]
     Active Substance: SIMVASTATIN
  5. RAMIPRIL [Concomitant]
     Active Substance: RAMIPRIL
  6. XALATAN [Concomitant]
     Active Substance: LATANOPROST
  7. ALFUZOSIN [Concomitant]
     Active Substance: ALFUZOSIN

REACTIONS (4)
  - General physical health deterioration [Unknown]
  - Respiratory disorder [Unknown]
  - Pneumonia [Unknown]
  - Product dose omission issue [Unknown]
